FAERS Safety Report 7755985-2 (Version None)
Quarter: 2011Q3

REPORT INFORMATION
  Report Type: 
  Country: None (occurrence: None)
  Receive Date: 20110908
  Receipt Date: 20110826
  Transmission Date: 20111222
  Serious: Yes (Other)
  Sender: FDA-Public Use
  Company Number: 2011PROUSA00550

PATIENT
  Age: 69 Year
  Sex: Male

DRUGS (8)
  1. ASPIRIN [Concomitant]
  2. CYANOCOBALAMIN [Concomitant]
  3. MULTIVITAMIN /00097801/ (ASCORBIC ACID, CALCIUM PANTOTHENATE, ERGOCALC [Concomitant]
  4. PROVENGE [Suspect]
     Indication: PROSTATE CANCER METASTATIC
     Dosage: 250 ML, SINGLE, INTRAVENOUS
     Route: 042
     Dates: start: 20110729, end: 20110729
  5. ACTONEL [Concomitant]
  6. EFFEXOR [Concomitant]
  7. ZOCOR [Concomitant]
  8. CALCIUM + VITAMIN D /01483701/ (CALCIUM, COLECALCIFEROL) [Concomitant]

REACTIONS (1)
  - ENTEROBACTER INFECTION [None]
